FAERS Safety Report 19578263 (Version 2)
Quarter: 2021Q3

REPORT INFORMATION
  Report Type: Spontaneous
  Country: US (occurrence: US)
  Receive Date: 20210719
  Receipt Date: 20210721
  Transmission Date: 20211014
  Serious: Yes (Life-Threatening, Hospitalization, Other)
  Sender: FDA-Public Use
  Company Number: US-JNJFOC-20210731629

PATIENT
  Age: 25 Year
  Sex: Female

DRUGS (1)
  1. IMODIUM [Suspect]
     Active Substance: LOPERAMIDE HYDROCHLORIDE
     Indication: PRODUCT USED FOR UNKNOWN INDICATION
     Route: 065

REACTIONS (10)
  - Cardiac arrest [Recovered/Resolved]
  - Cardiotoxicity [Recovered/Resolved]
  - Drug abuse [Recovered/Resolved]
  - Ventricular arrhythmia [Recovered/Resolved]
  - Toxicity to various agents [Recovered/Resolved]
  - Ventricular tachycardia [Recovered/Resolved]
  - Left ventricular hypertrophy [Recovered/Resolved]
  - Unmasking of previously unidentified disease [Recovered/Resolved]
  - Overdose [Recovered/Resolved]
  - Hypertrophic cardiomyopathy [Recovered/Resolved]
